FAERS Safety Report 5992895-5 (Version None)
Quarter: 2008Q4

REPORT INFORMATION
  Report Type: 
  Country: None (occurrence: None)
  Receive Date: 20081212
  Receipt Date: 20081203
  Transmission Date: 20090506
  Serious: Yes (Other)
  Sender: FDA-Public Use
  Company Number: US-JNJFOC-20081201192

PATIENT
  Sex: Female
  Weight: 50.8 kg

DRUGS (3)
  1. DOXIL [Suspect]
     Indication: OVARIAN CANCER
     Route: 042
  2. ADVIL LIQUI-GELS [Concomitant]
     Indication: PAIN
     Route: 048
  3. ATIVAN [Concomitant]
     Indication: ANXIETY
     Route: 048

REACTIONS (1)
  - CARBOHYDRATE ANTIGEN 125 INCREASED [None]
